FAERS Safety Report 5436076-2 (Version None)
Quarter: 2007Q3

REPORT INFORMATION
  Report Type: 
  Country: None (occurrence: None)
  Receive Date: 20070831
  Receipt Date: 20070822
  Transmission Date: 20080115
  Serious: Yes (Death, Hospitalization)
  Sender: FDA-Public Use
  Company Number: ES-AMGEN-UK234832

PATIENT
  Sex: Male

DRUGS (11)
  1. PANITUMUMAB [Suspect]
     Indication: COLORECTAL CANCER
     Route: 042
     Dates: start: 20070705
  2. IRINOTECAN HCL [Suspect]
     Indication: COLORECTAL CANCER
     Route: 042
     Dates: start: 20070705
  3. MOTILIUM [Concomitant]
     Route: 048
     Dates: start: 20070103
  4. MOTILIUM [Concomitant]
     Dates: start: 20070527
  5. OMEPRAZOLE [Concomitant]
     Route: 048
     Dates: start: 20070103
  6. LYRICA [Concomitant]
     Route: 048
     Dates: start: 20070103
  7. DUROGESIC [Concomitant]
     Route: 062
  8. OXYNORM [Concomitant]
     Route: 048
     Dates: start: 20070426
  9. DIMETICONE [Concomitant]
  10. LOPERAMIDE HCL [Concomitant]
     Route: 048
     Dates: start: 20070707
  11. MEGESTROL ACETATE [Concomitant]
     Route: 048
     Dates: start: 20070527

REACTIONS (3)
  - DIARRHOEA [None]
  - GASTROINTESTINAL TOXICITY [None]
  - VOMITING [None]
